FAERS Safety Report 7676835-9 (Version None)
Quarter: 2011Q3

REPORT INFORMATION
  Report Type: 
  Country: None (occurrence: None)
  Receive Date: 20110811
  Receipt Date: 20110802
  Transmission Date: 20111222
  Serious: Yes (Death)
  Sender: FDA-Public Use
  Company Number: JP-CELGENEUS-087-50794-11080777

PATIENT
  Age: 74 Year
  Sex: Male

DRUGS (7)
  1. GLIMICRON [Concomitant]
     Route: 065
     Dates: end: 20110501
  2. DIOVAN [Concomitant]
     Route: 065
     Dates: end: 20110501
  3. ORGARAN [Concomitant]
     Route: 065
     Dates: start: 20110419, end: 20110427
  4. MEROPENEM [Concomitant]
     Route: 065
     Dates: start: 20110419, end: 20110426
  5. FUNGUARD [Concomitant]
     Route: 065
     Dates: start: 20110419, end: 20110501
  6. HUMALOG [Concomitant]
     Route: 065
     Dates: end: 20110501
  7. VIDAZA [Suspect]
     Indication: MYELODYSPLASTIC SYNDROME
     Dosage: 75 MILLIGRAM/SQ. METER
     Route: 041
     Dates: start: 20110420, end: 20110426

REACTIONS (1)
  - CEREBROVASCULAR ACCIDENT [None]
